FAERS Safety Report 14684647 (Version 1)
Quarter: 2018Q1

REPORT INFORMATION
  Report Type: Spontaneous
  Country: US (occurrence: US)
  Receive Date: 20180327
  Receipt Date: 20180327
  Transmission Date: 20180509
  Serious: Yes (Other)
  Sender: FDA-Public Use
  Company Number: US-EXELA PHARMA SCIENCES, LLC-2018EXL00008

PATIENT

DRUGS (1)
  1. VERAPAMIL HYDROCHLORIDE. [Suspect]
     Active Substance: VERAPAMIL HYDROCHLORIDE
     Indication: VASOSPASM
     Dosage: 10 MG, UNK
     Route: 013

REACTIONS (2)
  - Cerebrovascular accident [Recovered/Resolved]
  - Blood brain barrier defect [Recovered/Resolved]
